FAERS Safety Report 14068982 (Version 5)
Quarter: 2018Q1

REPORT INFORMATION
  Report Type: Spontaneous
  Country: FR (occurrence: FR)
  Receive Date: 20171010
  Receipt Date: 20180117
  Transmission Date: 20180508
  Serious: Yes (Other)
  Sender: FDA-Public Use
  Company Number: FR-MERCK KGAA-2029442

PATIENT
  Age: 69 Year
  Sex: Female

DRUGS (5)
  1. LEVOTHYROX [Suspect]
     Active Substance: LEVOTHYROXINE
     Dates: start: 20170822
  2. NOVOTHYROX [Suspect]
     Active Substance: LEVOTHYROXINE SODIUM
     Indication: POST PROCEDURAL HYPOTHYROIDISM
     Dates: start: 201704, end: 20170822
  3. LEVOTHYROX [Suspect]
     Active Substance: LEVOTHYROXINE
     Dates: start: 20170822
  4. LEVOTHYROX 150 NF [Suspect]
     Active Substance: LEVOTHYROXINE SODIUM
     Dates: start: 201705
  5. LEXOMIL [Concomitant]
     Active Substance: BROMAZEPAM

REACTIONS (36)
  - Depression [None]
  - Back pain [None]
  - Incoherent [None]
  - Crying [None]
  - Loss of personal independence in daily activities [None]
  - Malaise [None]
  - Fatigue [None]
  - Tachycardia [None]
  - Hot flush [Not Recovered/Not Resolved]
  - Weight decreased [Not Recovered/Not Resolved]
  - Pyrexia [None]
  - Vertigo [None]
  - Anger [None]
  - Nervousness [None]
  - Alopecia [None]
  - Vision blurred [None]
  - Blood thyroid stimulating hormone abnormal [Recovering/Resolving]
  - Insomnia [Not Recovered/Not Resolved]
  - Suicidal ideation [None]
  - Pain [None]
  - Hair colour changes [None]
  - Skin discolouration [None]
  - Dysstasia [None]
  - Formication [None]
  - Pain in extremity [None]
  - Dyspnoea [None]
  - Palpitations [None]
  - Memory impairment [None]
  - Inappropriate schedule of drug administration [None]
  - Hyperhidrosis [None]
  - Musculoskeletal discomfort [None]
  - Visual impairment [None]
  - Muscle spasms [None]
  - Gait disturbance [None]
  - Blood pressure systolic abnormal [None]
  - Dizziness [None]

NARRATIVE: CASE EVENT DATE: 2017
